FAERS Safety Report 4451151-7 (Version None)
Quarter: 2004Q3

REPORT INFORMATION
  Report Type: 
  Country: None (occurrence: None)
  Receive Date: 20040916
  Receipt Date: 20040907
  Transmission Date: 20050211
  Serious: Yes (Other)
  Sender: FDA-Public Use
  Company Number: 200418888GDDC

PATIENT
  Age: 50 Year
  Sex: Male

DRUGS (5)
  1. RIFAMPICIN [Suspect]
     Indication: ARTHRITIS BACTERIAL
     Route: 048
     Dates: start: 20040602, end: 20040623
  2. CIPROFLOXACIN [Suspect]
     Indication: ARTHRITIS BACTERIAL
     Route: 048
     Dates: start: 20040602, end: 20040623
  3. PERGOLIDE MESYLATE [Concomitant]
     Route: 048
  4. MADOPAR [Concomitant]
     Indication: PARKINSON'S DISEASE
     Route: 048
  5. BENZHEXOL [Concomitant]
     Route: 048

REACTIONS (5)
  - AKINESIA [None]
  - CONDITION AGGRAVATED [None]
  - DRUG INTERACTION [None]
  - FREEZING PHENOMENON [None]
  - PARKINSON'S DISEASE [None]
